FAERS Safety Report 22268629 (Version 1)
Quarter: 2023Q2

REPORT INFORMATION
  Report Type: Spontaneous
  Country: US (occurrence: US)
  Receive Date: 20230501
  Receipt Date: 20230501
  Transmission Date: 20230722
  Serious: Yes (Death, Other)
  Sender: FDA-Public Use
  Company Number: US-AMGEN-USASP2023072762

PATIENT
  Age: 12 Year
  Sex: Female

DRUGS (6)
  1. RITUXIMAB [Suspect]
     Active Substance: RITUXIMAB
     Indication: Paraneoplastic pemphigus
     Dosage: UNK
     Route: 065
  2. RITUXIMAB [Suspect]
     Active Substance: RITUXIMAB
     Indication: Castleman^s disease
  3. PREDNISONE [Concomitant]
     Active Substance: PREDNISONE
     Indication: Paraneoplastic pemphigus
     Dosage: UNK
     Route: 065
  4. PREDNISONE [Concomitant]
     Active Substance: PREDNISONE
     Indication: Castleman^s disease
  5. Immunoglobulin [Concomitant]
     Indication: Castleman^s disease
     Dosage: UNK
     Route: 042
  6. Immunoglobulin [Concomitant]
     Indication: Paraneoplastic pemphigus

REACTIONS (5)
  - Septic shock [Fatal]
  - Obliterative bronchiolitis [Fatal]
  - Castleman^s disease [Unknown]
  - Paraneoplastic pemphigus [Unknown]
  - Off label use [Unknown]
